FAERS Safety Report 5297691-2 (Version None)
Quarter: 2007Q2

REPORT INFORMATION
  Report Type: 
  Country: None (occurrence: None)
  Receive Date: 20070412
  Receipt Date: 20070412
  Transmission Date: 20071010
  Serious: Yes (Life-Threatening, Hospitalization)
  Sender: FDA-Public Use
  Company Number: None

PATIENT
  Sex: Female
  Weight: 102 kg

DRUGS (14)
  1. GLEEVEC [Suspect]
     Indication: OLIGODENDROGLIOMA
     Dosage: 400 MG BID PO
     Route: 048
     Dates: start: 20070328
  2. DECADRON [Concomitant]
  3. ORTHO TRI-CYCLEN [Concomitant]
  4. DEXMEDETOMIDE [Concomitant]
  5. POTASSIUM CHLORIDE [Concomitant]
  6. NOVOLIN 50/50 [Concomitant]
  7. FENTANYL [Concomitant]
  8. HEPARIN [Concomitant]
  9. LACRI-LUBE OPHTH OINT [Concomitant]
  10. KEPPRA [Concomitant]
  11. PRILOSEC [Concomitant]
  12. DUCOSATE [Concomitant]
  13. ZOFRAN [Concomitant]
  14. TYLENOL [Concomitant]

REACTIONS (5)
  - CONVULSION [None]
  - HYDROCEPHALUS [None]
  - MENTAL STATUS CHANGES [None]
  - NEOPLASM PROGRESSION [None]
  - VISUAL DISTURBANCE [None]
